FAERS Safety Report 5722198-5 (Version None)
Quarter: 2008Q2

REPORT INFORMATION
  Report Type: 
  Country: None (occurrence: None)
  Receive Date: 20080429
  Receipt Date: 20070601
  Transmission Date: 20081010
  Serious: No
  Sender: FDA-Public Use
  Company Number: US-ASTRAZENECA-2007UW13357

PATIENT
  Sex: Female

DRUGS (3)
  1. NEXIUM [Suspect]
     Indication: CHEST PAIN
     Route: 048
  2. NEXIUM [Suspect]
     Indication: SENSATION OF FOREIGN BODY
     Route: 048
  3. NEXIUM [Suspect]
     Indication: DYSGEUSIA
     Route: 048

REACTIONS (3)
  - DRUG INEFFECTIVE FOR UNAPPROVED INDICATION [None]
  - DYSGEUSIA [None]
  - SENSATION OF FOREIGN BODY [None]
